FAERS Safety Report 7555043-6 (Version None)
Quarter: 2011Q2

REPORT INFORMATION
  Report Type: 
  Country: None (occurrence: None)
  Receive Date: 20110617
  Receipt Date: 20110615
  Transmission Date: 20111010
  Serious: Yes (Hospitalization, Other)
  Sender: FDA-Public Use
  Company Number: JP-PFIZER INC-2011026508

PATIENT
  Age: 79 Year
  Sex: Male
  Weight: 36.4 kg

DRUGS (7)
  1. ALPRAZOLAM [Suspect]
     Dosage: 0.4 MG, 2X/DAY
     Route: 048
     Dates: start: 20080502, end: 20080509
  2. DAI-KENCHU-TO [Concomitant]
     Dosage: 2.5 G, 3X/DAY
     Route: 048
     Dates: start: 20080418, end: 20080502
  3. ALPRAZOLAM [Suspect]
     Dosage: 0.4 MG, 3X/DAY
     Route: 048
     Dates: start: 20080422, end: 20080502
  4. ALPRAZOLAM [Suspect]
     Dosage: 0.4 MG, 1X/DAY
     Route: 048
     Dates: start: 20080509, end: 20080707
  5. SULPIRIDE [Suspect]
     Indication: ABDOMINAL PAIN
     Dosage: 50 MG, 3X/DAY
     Route: 048
     Dates: start: 20080418, end: 20080707
  6. ALPRAZOLAM [Suspect]
     Indication: ANXIETY DISORDER
     Dosage: 0.4 MG AS NEEDED
     Route: 048
     Dates: start: 20080419, end: 20080422
  7. RISPERDAL [Suspect]
     Indication: ANXIETY DISORDER
     Dosage: 0.5 MG, 1X/DAY
     Route: 048
     Dates: start: 20080502, end: 20080707

REACTIONS (3)
  - INSOMNIA [None]
  - PNEUMONIA ASPIRATION [None]
  - PARKINSONISM [None]
